FAERS Safety Report 7272491-2 (Version None)
Quarter: 2011Q1

REPORT INFORMATION
  Report Type: 
  Country: None (occurrence: None)
  Receive Date: 20110203
  Receipt Date: 20110126
  Transmission Date: 20110831
  Serious: Yes (Other)
  Sender: FDA-Public Use
  Company Number: JP-ROCHE-735973

PATIENT
  Sex: Male
  Weight: 71 kg

DRUGS (3)
  1. XELODA [Suspect]
     Indication: COLON CANCER
     Dosage: DOSAGE IS UNCERTAIN, XELODA 300
     Route: 048
     Dates: start: 20100625, end: 20101007
  2. PYDOXAL [Concomitant]
     Route: 048
     Dates: start: 20100723, end: 20101007
  3. PYDOXAL [Concomitant]
     Route: 048
     Dates: start: 20100625, end: 20100708

REACTIONS (5)
  - ALANINE AMINOTRANSFERASE INCREASED [None]
  - DYSLIPIDAEMIA [None]
  - ASPARTATE AMINOTRANSFERASE INCREASED [None]
  - BLOOD LACTATE DEHYDROGENASE INCREASED [None]
  - GAMMA-GLUTAMYLTRANSFERASE INCREASED [None]
